FAERS Safety Report 11159014 (Version 1)
Quarter: 2015Q2

REPORT INFORMATION
  Report Type: Spontaneous
  Country: US (occurrence: US)
  Receive Date: 20150603
  Receipt Date: 20150603
  Transmission Date: 20150821
  Serious: Yes (Other)
  Sender: FDA-Public Use
  Company Number: US-JNJFOC-20150515165

PATIENT
  Sex: Male

DRUGS (2)
  1. HYDROCORTISONE. [Suspect]
     Active Substance: HYDROCORTISONE
     Indication: PRODUCT USED FOR UNKNOWN INDICATION
     Dosage: 20 MG IN THE MORNING AND 10 MG IN THE EVENING
     Route: 048
  2. KETOCONAZOLE. [Suspect]
     Active Substance: KETOCONAZOLE
     Indication: PROSTATE CANCER
     Dosage: 200-30 MG
     Route: 048

REACTIONS (5)
  - Aspartate aminotransferase increased [Unknown]
  - Drug intolerance [Unknown]
  - Fatigue [Unknown]
  - Hyperglycaemia [Unknown]
  - Off label use [Unknown]
